FAERS Safety Report 5322990-5 (Version None)
Quarter: 2007Q2

REPORT INFORMATION
  Report Type: 
  Country: None (occurrence: None)
  Receive Date: 20070220
  Receipt Date: 20070102
  Transmission Date: 20071010
  Serious: No
  Sender: FDA-Public Use
  Company Number: WAES 0701USA00285

PATIENT
  Age: 67 Year
  Sex: Male

DRUGS (6)
  1. JANUVIA [Suspect]
     Indication: DIABETES MELLITUS NON-INSULIN-DEPENDENT
     Dosage: 100 MG/BID/PO
     Route: 048
     Dates: start: 20061229, end: 20061230
  2. ACTOS [Concomitant]
  3. LASIX [Concomitant]
  4. VYTORIN [Concomitant]
  5. [THERAPY UNSPECIFIED] [Concomitant]
  6. GLYBURIDE [Concomitant]

REACTIONS (2)
  - DIARRHOEA [None]
  - OVERDOSE [None]
